FAERS Safety Report 13496745 (Version 1)
Quarter: 2017Q2

REPORT INFORMATION
  Report Type: Spontaneous
  Country: US (occurrence: US)
  Receive Date: 20170428
  Receipt Date: 20170428
  Transmission Date: 20170830
  Serious: Yes (Hospitalization)
  Sender: FDA-Public Use
  Company Number: US-LUNDBECK-DKLU2029908

PATIENT
  Sex: Female

DRUGS (1)
  1. NORTHERA [Suspect]
     Active Substance: DROXIDOPA
     Indication: AUTONOMIC NEUROPATHY
     Dosage: SCHEDULE C NOT TITRATING
     Route: 065

REACTIONS (3)
  - Fall [Recovered/Resolved with Sequelae]
  - Subarachnoid haemorrhage [Unknown]
  - Subdural haemorrhage [Unknown]
